FAERS Safety Report 8400125-X (Version None)
Quarter: 2012Q2

REPORT INFORMATION
  Report Type: 
  Country: None (occurrence: None)
  Receive Date: 20120531
  Receipt Date: 20120522
  Transmission Date: 20120825
  Serious: Yes (Other)
  Sender: FDA-Public Use
  Company Number: US-PFIZER INC-2012075104

PATIENT
  Sex: Female
  Weight: 77.098 kg

DRUGS (6)
  1. LYRICA [Suspect]
     Indication: FIBROMYALGIA
  2. LYRICA [Suspect]
     Indication: TENDONITIS
     Dosage: 75 MG, 2X/DAY
     Route: 048
     Dates: start: 20120201, end: 20120323
  3. CLARITIN [Concomitant]
     Indication: HYPERSENSITIVITY
     Dosage: UNK
  4. LYRICA [Suspect]
     Indication: MYALGIA
  5. TRAMADOL [Concomitant]
     Indication: TENDONITIS
     Dosage: UNK
  6. PLAVIX [Concomitant]
     Indication: ANTICOAGULANT THERAPY
     Dosage: UNK

REACTIONS (9)
  - MUSCULOSKELETAL STIFFNESS [None]
  - DYSKINESIA [None]
  - HYPOAESTHESIA [None]
  - GRIP STRENGTH DECREASED [None]
  - JOINT RANGE OF MOTION DECREASED [None]
  - PARALYSIS [None]
  - MYALGIA [None]
  - MUSCULAR WEAKNESS [None]
  - TREMOR [None]
